FAERS Safety Report 9678619 (Version 2)
Quarter: 2013Q4

REPORT INFORMATION
  Report Type: Spontaneous
  Country: US (occurrence: US)
  Receive Date: 20131108
  Receipt Date: 20131108
  Transmission Date: 20140711
  Serious: Yes (Hospitalization)
  Sender: FDA-Public Use
  Company Number: US-B.I. PHARMACEUTICALS,INC./RIDGEFIELD-2013-BI-13959BP

PATIENT
  Age: 68 Year
  Sex: Male
  Weight: 104.33 kg

DRUGS (18)
  1. PRADAXA [Suspect]
     Indication: ANTICOAGULANT THERAPY
     Dosage: 300 MG
     Route: 048
     Dates: end: 20130102
  2. PRADAXA [Suspect]
     Indication: ATRIAL FIBRILLATION
  3. NEXIUM [Concomitant]
     Dosage: 40 MG
  4. ISOSORBIDE [Concomitant]
     Dosage: 30 MG
  5. CARVEDILOL [Concomitant]
     Dosage: 12.5 MG
  6. RANEXA [Concomitant]
     Dosage: 1000 MG
     Route: 048
  7. LISINOPRIL [Concomitant]
  8. GABAPENTIN [Concomitant]
     Dosage: 300 MG
     Route: 048
  9. CRESTOR [Concomitant]
     Dosage: 40 MG
  10. GLIPIZIDE [Concomitant]
     Dosage: 10 MG
  11. METFORMIN [Concomitant]
     Dosage: 1000 MG
  12. LEVOTHYROXINE [Concomitant]
     Dosage: 0.75 MG
  13. STOOL SOFTENER [Concomitant]
     Dosage: 100 MG
  14. NAPROXEN [Concomitant]
     Dosage: 220 MG
     Route: 048
  15. NITROGLYCERIN [Concomitant]
     Indication: CHEST PAIN
     Route: 060
  16. CALCIUM [Concomitant]
     Dosage: 1200 MG
  17. FOLIC ACID [Concomitant]
     Dosage: 100 MG
     Route: 048
  18. VITAMIN D3 [Concomitant]
     Dosage: 4000 U

REACTIONS (1)
  - Gastrointestinal haemorrhage [Recovered/Resolved]
